FAERS Safety Report 20505807 (Version 1)
Quarter: 2022Q1

REPORT INFORMATION
  Report Type: Spontaneous
  Country: US (occurrence: None)
  Receive Date: 20220222
  Receipt Date: 20220222
  Transmission Date: 20220424
  Serious: Yes (Death)
  Sender: FDA-Public Use
  Company Number: None

PATIENT
  Age: 56 Year
  Sex: Male

DRUGS (3)
  1. TIVICAY [Suspect]
     Active Substance: DOLUTEGRAVIR SODIUM
     Indication: HIV infection
     Dosage: FREQUENCY : DAILY;?
     Route: 048
     Dates: end: 20220122
  2. LAMIVUDINE [Concomitant]
     Active Substance: LAMIVUDINE
  3. ABACAVIR [Concomitant]
     Active Substance: ABACAVIR

REACTIONS (1)
  - Myocardial infarction [None]

NARRATIVE: CASE EVENT DATE: 20220122
